FAERS Safety Report 9736875 (Version 1)
Quarter: 2013Q4

REPORT INFORMATION
  Report Type: Spontaneous
  Country: US (occurrence: US)
  Receive Date: 20131206
  Receipt Date: 20131206
  Transmission Date: 20140711
  Serious: No
  Sender: FDA-Public Use
  Company Number: US-BIOGENIDEC-2013BI098903

PATIENT
  Age: 39 Year
  Sex: Female

DRUGS (9)
  1. TECFIDERA [Suspect]
     Indication: MULTIPLE SCLEROSIS
  2. FLEXERIL [Concomitant]
  3. AMPYRA [Concomitant]
  4. IBUPROFEN [Concomitant]
  5. GABAPENTIN [Concomitant]
  6. SERTRALINE [Concomitant]
  7. OMEPRAZOLE [Concomitant]
  8. OXYBUTYNIN [Concomitant]
  9. VITAMIN D [Concomitant]

REACTIONS (1)
  - Skin discolouration [Unknown]
